FAERS Safety Report 9082494 (Version 1)
Quarter: 2013Q1

REPORT INFORMATION
  Report Type: Spontaneous
  Country: US (occurrence: US)
  Receive Date: 20130218
  Receipt Date: 20130218
  Transmission Date: 20140127
  Serious: No
  Sender: FDA-Public Use
  Company Number: US-PFIZER INC-2013061796

PATIENT
  Sex: Male

DRUGS (2)
  1. PRISTIQ [Suspect]
     Dosage: 50 MG, UNK
     Dates: start: 20130216
  2. VENLAFAXINE HYDROCHLORIDE [Suspect]
     Dosage: UNK

REACTIONS (1)
  - Dizziness [Unknown]
